FAERS Safety Report 12234472 (Version 1)
Quarter: 2016Q2

REPORT INFORMATION
  Report Type: Spontaneous
  Country: US (occurrence: None)
  Receive Date: 20160401
  Receipt Date: 20160401
  Transmission Date: 20160815
  Serious: Yes (Hospitalization)
  Sender: FDA-Public Use
  Company Number: None

PATIENT
  Sex: Male
  Weight: 75.9 kg

DRUGS (13)
  1. MAGNESIUM [Concomitant]
     Active Substance: MAGNESIUM
  2. PROTONIX [Concomitant]
     Active Substance: PANTOPRAZOLE SODIUM
  3. THIAMINE. [Concomitant]
     Active Substance: THIAMINE
  4. ALDACTONE [Concomitant]
     Active Substance: SPIRONOLACTONE
  5. COREG [Concomitant]
     Active Substance: CARVEDILOL
  6. HARVONI [Suspect]
     Active Substance: LEDIPASVIR\SOFOSBUVIR
     Indication: HEPATITIS C
     Dosage: 400 SOF/ 90 LED 1 X DAILY PO
     Route: 048
     Dates: start: 20150619, end: 20151204
  7. LASIX [Concomitant]
     Active Substance: FUROSEMIDE
  8. LYRICA [Concomitant]
     Active Substance: PREGABALIN
  9. PHENERGAN [Concomitant]
     Active Substance: PROMETHAZINE HYDROCHLORIDE
  10. AMILORIDE [Concomitant]
     Active Substance: AMILORIDE
  11. RIFAXIMEN [Concomitant]
  12. OXYCODONE [Concomitant]
     Active Substance: OXYCODONE
  13. LACTULOSE. [Concomitant]
     Active Substance: LACTULOSE

REACTIONS (5)
  - Dyspnoea [None]
  - Oropharyngeal pain [None]
  - Procedural complication [None]
  - Laryngospasm [None]
  - Aspiration [None]

NARRATIVE: CASE EVENT DATE: 20151211
